FAERS Safety Report 26099210 (Version 1)
Quarter: 2025Q4

REPORT INFORMATION
  Report Type: Report from Study
  Country: TW (occurrence: TW)
  Receive Date: 20251128
  Receipt Date: 20251128
  Transmission Date: 20260117
  Serious: Yes (Other)
  Sender: ROCHE
  Company Number: TW-ROCHE-10000438142

PATIENT
  Age: 69 Year
  Sex: Male

DRUGS (1)
  1. VABYSMO [Suspect]
     Active Substance: FARICIMAB-SVOA
     Indication: Polypoidal choroidal vasculopathy
     Route: 065

REACTIONS (3)
  - Scar [Unknown]
  - Cataract nuclear [Unknown]
  - Maculopathy [Unknown]
